FAERS Safety Report 4915085-3 (Version None)
Quarter: 2006Q1

REPORT INFORMATION
  Report Type: 
  Country: None (occurrence: None)
  Receive Date: 20060217
  Receipt Date: 20060208
  Transmission Date: 20060701
  Serious: Yes (Hospitalization)
  Sender: FDA-Public Use
  Company Number: FR-BRISTOL-MYERS SQUIBB COMPANY-13277314

PATIENT
  Age: 84 Year
  Sex: Male

DRUGS (12)
  1. COUMADIN [Suspect]
     Route: 048
     Dates: end: 20060102
  2. DEROXAT [Suspect]
     Dates: end: 20060102
  3. FORLAX [Suspect]
     Dates: end: 20060102
  4. OMEPRAZOLE [Suspect]
     Dates: end: 20060102
  5. TAZOCILLINE [Suspect]
     Route: 042
     Dates: start: 20060102, end: 20060103
  6. ZYLORIC [Suspect]
     Dates: end: 20060102
  7. FONZYLANE [Concomitant]
  8. DIGOXIN [Concomitant]
  9. ACETAMINOPHEN [Concomitant]
     Dates: end: 20060102
  10. FLUDROCORTISONE [Concomitant]
  11. TAVANIC [Concomitant]
  12. AUGMENTIN '125' [Concomitant]
     Dates: start: 20060104

REACTIONS (4)
  - CONFUSIONAL STATE [None]
  - HEPATITIS [None]
  - MYOCLONUS [None]
  - RENAL FAILURE ACUTE [None]
